FAERS Safety Report 19265332 (Version 1)
Quarter: 2021Q2

REPORT INFORMATION
  Report Type: Spontaneous
  Country: GB (occurrence: GB)
  Receive Date: 20210517
  Receipt Date: 20210517
  Transmission Date: 20210717
  Serious: Yes (Other)
  Sender: FDA-Public Use
  Company Number: GB-TORRENT-00025671

PATIENT
  Age: 4 Year
  Sex: Male
  Weight: 15 kg

DRUGS (5)
  1. SALBUTAMOL [Concomitant]
     Active Substance: ALBUTEROL
     Indication: ILL-DEFINED DISORDER
     Dosage: UNKNOWN
  2. MONTELUKAST [Suspect]
     Active Substance: MONTELUKAST SODIUM
     Indication: ASTHMA
     Dosage: 4MG ONCE A DAY AT NIGHT
     Route: 048
     Dates: start: 20210317, end: 20210507
  3. CITRIZINE [Concomitant]
     Indication: ILL-DEFINED DISORDER
     Dosage: UNKNOWN
  4. BECLOMETHASONE DIPROPIONATE [Concomitant]
     Active Substance: BECLOMETHASONE DIPROPIONATE
     Indication: ILL-DEFINED DISORDER
     Dosage: UNKNOWN
  5. EUMOVATE [Concomitant]
     Active Substance: CLOBETASONE BUTYRATE
     Indication: ILL-DEFINED DISORDER
     Dosage: UNKNOWN

REACTIONS (1)
  - Aggression [Not Recovered/Not Resolved]
